FAERS Safety Report 9441894 (Version 3)
Quarter: 2013Q3

REPORT INFORMATION
  Report Type: Spontaneous
  Country: NL (occurrence: NL)
  Receive Date: 20130806
  Receipt Date: 20130913
  Transmission Date: 20140515
  Serious: Yes (Disabling)
  Sender: FDA-Public Use
  Company Number: NL-JNJFOC-20130800488

PATIENT
  Age: 40 Year
  Sex: Female
  Weight: 72 kg

DRUGS (5)
  1. REMICADE [Suspect]
     Indication: COLITIS ULCERATIVE
     Route: 042
     Dates: start: 201211, end: 20130604
  2. SLOW K [Concomitant]
     Dosage: (2DD 1200 MG)
     Route: 048
  3. PENTASA [Concomitant]
     Dosage: (2 DD 2 GRAM)
     Route: 048
  4. ISOTRETINOIN [Concomitant]
     Route: 048
  5. CALCIUM AND VIT D [Concomitant]
     Dosage: REPORTED AS 1 TIMES PER 1 DAYS 1 DF (1DD)
     Route: 048

REACTIONS (1)
  - Optic ischaemic neuropathy [Not Recovered/Not Resolved]
